FAERS Safety Report 10152606 (Version 1)
Quarter: 2014Q2

REPORT INFORMATION
  Report Type: Spontaneous
  Country: US (occurrence: None)
  Receive Date: 20140502
  Receipt Date: 20140502
  Transmission Date: 20141212
  Serious: Yes (Other)
  Sender: FDA-Public Use
  Company Number: None

PATIENT
  Age: 80 Year
  Sex: Male

DRUGS (1)
  1. IMBRUVICA [Suspect]
     Indication: PRODUCT USED FOR UNKNOWN INDICATION
     Dosage: 140 MG TAKE 3 DAILY, DAILY, PO
     Route: 048
     Dates: start: 20140424

REACTIONS (6)
  - Asthenia [None]
  - Fall [None]
  - Laceration [None]
  - Contusion [None]
  - Vomiting [None]
  - Walking aid user [None]
